FAERS Safety Report 14829198 (Version 1)
Quarter: 2018Q2

REPORT INFORMATION
  Report Type: Spontaneous
  Country: US (occurrence: US)
  Receive Date: 20180430
  Receipt Date: 20180430
  Transmission Date: 20180711
  Serious: No
  Sender: FDA-Public Use
  Company Number: US-SHIRE-US201816051

PATIENT
  Sex: Female

DRUGS (1)
  1. XIIDRA [Suspect]
     Active Substance: LIFITEGRAST
     Indication: DRY EYE
     Dosage: UNK
     Route: 047
     Dates: start: 201802

REACTIONS (3)
  - Vision blurred [Not Recovered/Not Resolved]
  - Instillation site reaction [Not Recovered/Not Resolved]
  - Instillation site lacrimation [Not Recovered/Not Resolved]

NARRATIVE: CASE EVENT DATE: 201802
